FAERS Safety Report 5465452-7 (Version None)
Quarter: 2007Q3

REPORT INFORMATION
  Report Type: 
  Country: None (occurrence: None)
  Receive Date: 20070920
  Receipt Date: 20070920
  Transmission Date: 20080115
  Serious: Yes (Other)
  Sender: FDA-Public Use
  Company Number: None

PATIENT
  Age: 46 Year
  Sex: Female
  Weight: 74.8435 kg

DRUGS (1)
  1. CHANTIX [Suspect]
     Indication: SMOKING CESSATION THERAPY
     Dosage: AS DIRECTED/ 1 DAILY FIRST WEEK 2 DAILY PO
     Route: 048
     Dates: start: 20070814, end: 20070907

REACTIONS (3)
  - MYOCARDIAL INFARCTION [None]
  - NIGHTMARE [None]
  - SUICIDAL IDEATION [None]
